FAERS Safety Report 11116233 (Version 1)
Quarter: 2015Q2

REPORT INFORMATION
  Report Type: Spontaneous
  Country: AU (occurrence: AU)
  Receive Date: 20150515
  Receipt Date: 20150515
  Transmission Date: 20150821
  Serious: Yes (Hospitalization, Other)
  Sender: FDA-Public Use
  Company Number: AU-ACTAVIS-2015-09500

PATIENT
  Age: 75 Year
  Sex: Female

DRUGS (2)
  1. PHENYTOIN (AMALLC) [Suspect]
     Active Substance: PHENYTOIN
     Indication: SEIZURE
     Dosage: 300 MG, DAILY
     Route: 042
  2. PHENYTOIN (AMALLC) [Suspect]
     Active Substance: PHENYTOIN
     Dosage: 750 MG, SINGLE
     Route: 042

REACTIONS (2)
  - Anticonvulsant drug level increased [Recovering/Resolving]
  - Encephalopathy [Recovering/Resolving]
